FAERS Safety Report 19681464 (Version 2)
Quarter: 2021Q3

REPORT INFORMATION
  Report Type: Report from Study
  Country: BE (occurrence: FR)
  Receive Date: 20210810
  Receipt Date: 20210819
  Transmission Date: 20211014
  Serious: Yes (Hospitalization)
  Sender: FDA-Public Use
  Company Number: FR-ROCHE-2882794

PATIENT
  Age: 72 Year
  Sex: Female
  Weight: 53 kg

DRUGS (5)
  1. FUROSEMIDE. [Concomitant]
     Active Substance: FUROSEMIDE
     Route: 048
     Dates: start: 20210721
  2. FUROSEMIDE. [Concomitant]
     Active Substance: FUROSEMIDE
     Route: 048
     Dates: start: 20210610, end: 20210720
  3. ATEZOLIZUMAB. [Suspect]
     Active Substance: ATEZOLIZUMAB
     Indication: OVARIAN CANCER
     Dosage: ON 16/JUL/2021, SHE RECEIVED LAST DOSE OF ATEZOLIZUMAB PRIOR TO ONSET OF SERIOUS ADVERSE EVENT.
     Route: 041
     Dates: start: 20191211
  4. BLINDED ASPIRIN [Suspect]
     Active Substance: ASPIRIN
     Indication: OVARIAN CANCER
     Dosage: ON 29/OCT/2020, SHE RECEIVED LAST DOSE OF BLINDED ACETYLSALICYLIC ACID PRIOR TO ONSET OF SERIOUS ADV
     Route: 048
     Dates: start: 20191211
  5. BEVACIZUMAB. [Suspect]
     Active Substance: BEVACIZUMAB
     Indication: OVARIAN CANCER
     Dosage: ON 16/JUL/2021, SHE RECEIVED LAST DOS OF BEVACIZUMAB PRIOR TO ONSET OF SERIOUS ADVERSE EVENT.
     Route: 042
     Dates: start: 20191211

REACTIONS (1)
  - Dyspnoea [Not Recovered/Not Resolved]

NARRATIVE: CASE EVENT DATE: 20210728
